FAERS Safety Report 6302427-X (Version None)
Quarter: 2009Q3

REPORT INFORMATION
  Report Type: 
  Country: None (occurrence: None)
  Receive Date: 20090810
  Receipt Date: 20090804
  Transmission Date: 20100115
  Serious: Yes (Hospitalization)
  Sender: FDA-Public Use
  Company Number: JP-JNJFOC-20090802380

PATIENT
  Age: 36 Year
  Sex: Female
  Weight: 45 kg

DRUGS (4)
  1. CRAVIT [Suspect]
     Indication: PHARYNGITIS
     Route: 048
  2. EBASTEL [Concomitant]
     Route: 065
  3. ANTOBRON [Concomitant]
     Route: 065
  4. MUCOSTA [Concomitant]
     Route: 065

REACTIONS (3)
  - ABDOMINAL DISCOMFORT [None]
  - FEELING ABNORMAL [None]
  - PERIPHERAL COLDNESS [None]
